FAERS Safety Report 5555879-7 (Version None)
Quarter: 2007Q4

REPORT INFORMATION
  Report Type: 
  Country: None (occurrence: None)
  Receive Date: 20071213
  Receipt Date: 20071127
  Transmission Date: 20080405
  Serious: No
  Sender: FDA-Public Use
  Company Number: US-BOEHRINGER INGELHEIM PHARMACEUTICALS, INC.-2007-BP-25128BP

PATIENT
  Age: 47 Year
  Sex: Female
  Weight: 114 kg

DRUGS (6)
  1. MIRAPEX [Suspect]
     Indication: RESTLESS LEGS SYNDROME
     Dates: start: 20060815, end: 20071011
  2. REQUIP [Concomitant]
     Dates: start: 20071101
  3. ACLTON [Concomitant]
     Dates: start: 20060629
  4. K-TAB [Concomitant]
     Dosage: 10 MEQ BID
     Dates: start: 20070204
  5. ADVAIR DISKUS 100/50 [Concomitant]
     Dosage: BID
     Dates: start: 20061201
  6. BUMEX [Concomitant]
     Dates: start: 20070502

REACTIONS (2)
  - NARCOLEPSY [None]
  - OEDEMA [None]
